FAERS Safety Report 8017651-8 (Version None)
Quarter: 2012Q1

REPORT INFORMATION
  Report Type: 
  Country: None (occurrence: None)
  Receive Date: 20120103
  Receipt Date: 20111228
  Transmission Date: 20120608
  Serious: Yes (Death, Life-Threatening, Other)
  Sender: FDA-Public Use
  Company Number: DE-B.I. PHARMACEUTICALS,INC./RIDGEFIELD-2011-DE-06351DE

PATIENT
  Sex: Male
  Weight: 100 kg

DRUGS (7)
  1. XIPAMID [Concomitant]
     Indication: CARDIAC FAILURE
     Dosage: 20 MG
     Route: 048
     Dates: end: 20111108
  2. PRADAXA [Suspect]
     Indication: ATRIAL FIBRILLATION
     Dosage: 220 MG
     Route: 048
     Dates: start: 20111020, end: 20111108
  3. THEOPHYLLINE [Concomitant]
     Indication: ASTHMA
     Dosage: 375 MG
     Route: 048
     Dates: end: 20111108
  4. SPIRONOLACTONE [Concomitant]
     Indication: CARDIAC FAILURE
     Dosage: 50 MG
     Route: 048
     Dates: end: 20111108
  5. FUROSEMIDE [Concomitant]
     Indication: CARDIAC FAILURE
     Dosage: 40 MG
     Route: 048
     Dates: end: 20111108
  6. PANTOPRAZOLE [Concomitant]
     Indication: ULCER
     Dosage: 20 MG
     Route: 048
     Dates: end: 20111108
  7. PREDNISOLONE [Concomitant]
     Indication: ASTHMA
     Dosage: 5 MG
     Route: 048
     Dates: end: 20111108

REACTIONS (5)
  - GASTRIC ULCER [None]
  - RESPIRATORY FAILURE [None]
  - RENAL FAILURE [None]
  - OVERDOSE [None]
  - ACUTE ABDOMEN [None]
